FAERS Safety Report 5142563-7 (Version None)
Quarter: 2006Q4

REPORT INFORMATION
  Report Type: 
  Country: None (occurrence: None)
  Receive Date: 20061027
  Receipt Date: 20061014
  Transmission Date: 20070319
  Serious: Yes (Other)
  Sender: FDA-Public Use
  Company Number: 2006126555

PATIENT
  Age: 55 Year
  Sex: Male
  Weight: 77.1115 kg

DRUGS (4)
  1. VIAGRA [Suspect]
     Indication: ERECTILE DYSFUNCTION
     Dosage: 50 MG
     Dates: start: 20050101
  2. ALPRAZOLAM [Concomitant]
  3. INDERAL [Concomitant]
  4. BENICAR [Concomitant]

REACTIONS (9)
  - BLINDNESS TRANSIENT [None]
  - BLOOD TESTOSTERONE FREE DECREASED [None]
  - DRUG EFFECT DECREASED [None]
  - DRUG INEFFECTIVE [None]
  - FEELING ABNORMAL [None]
  - FLUSHING [None]
  - LOSS OF CONSCIOUSNESS [None]
  - MALAISE [None]
  - XANTHOPSIA [None]
